FAERS Safety Report 11371536 (Version 1)
Quarter: 2015Q3

REPORT INFORMATION
  Report Type: Spontaneous
  Country: ES (occurrence: ES)
  Receive Date: 20150812
  Receipt Date: 20150812
  Transmission Date: 20151125
  Serious: Yes (Other)
  Sender: FDA-Public Use
  Company Number: ALCN2015ES004988

PATIENT
  Age: 54 Year
  Sex: Male

DRUGS (1)
  1. TRIESENCE [Suspect]
     Active Substance: TRIAMCINOLONE ACETONIDE
     Indication: DIABETIC RETINAL OEDEMA
     Dosage: 1 DF, ONCE/SINGLE
     Route: 031
     Dates: start: 20150709, end: 20150709

REACTIONS (2)
  - Visual acuity reduced [Recovered/Resolved]
  - Corneal erosion [Recovered/Resolved]

NARRATIVE: CASE EVENT DATE: 20150710
